FAERS Safety Report 9319208 (Version 3)
Quarter: 2016Q1

REPORT INFORMATION
  Report Type: Report from Study
  Country: GB (occurrence: GB)
  Receive Date: 20130530
  Receipt Date: 20160125
  Transmission Date: 20160526
  Serious: Yes (Hospitalization)
  Sender: FDA-Public Use
  Company Number: GB-MERCK-1305GBR014928

PATIENT
  Age: 81 Year
  Sex: Male

DRUGS (4)
  1. VORINOSTAT [Suspect]
     Active Substance: VORINOSTAT
     Dosage: 300 MG, CYCLICAL (DAYS 1-7 AND 15-21)
     Route: 048
     Dates: start: 20130423, end: 20130423
  2. LENALIDOMIDE [Suspect]
     Active Substance: LENALIDOMIDE
     Indication: PLASMA CELL MYELOMA
     Dosage: 10 MG, CYCLICAL, DAY 1-DAY 21
     Route: 048
     Dates: start: 20120806, end: 20130422
  3. VORINOSTAT [Suspect]
     Active Substance: VORINOSTAT
     Indication: PLASMA CELL MYELOMA
     Dosage: 300 MG, CYCLICAL (DAYS 1-7 AND 15-21)
     Route: 048
     Dates: start: 20120806, end: 20130422
  4. LENALIDOMIDE [Suspect]
     Active Substance: LENALIDOMIDE
     Dosage: 10 MG, CYCLICAL, DAY 1-DAY 21
     Route: 048
     Dates: start: 20130423, end: 20130423

REACTIONS (1)
  - Atrioventricular block [Recovered/Resolved with Sequelae]

NARRATIVE: CASE EVENT DATE: 20130422
